FAERS Safety Report 8887664 (Version 1)
Quarter: 2012Q4

REPORT INFORMATION
  Report Type: Spontaneous
  Country: US (occurrence: None)
  Receive Date: 20121101
  Receipt Date: 20121101
  Transmission Date: 20130627
  Serious: Yes (Other)
  Sender: FDA-Public Use
  Company Number: None

PATIENT
  Age: 43 Year
  Sex: Male
  Weight: 77.11 kg

DRUGS (1)
  1. MEDROL DOSE PACK [Suspect]
     Indication: RASH
     Dosage: taper
     Route: 048
     Dates: start: 20120305, end: 20120307

REACTIONS (1)
  - Psychotic disorder [None]
